FAERS Safety Report 5806784-X (Version None)
Quarter: 2008Q3

REPORT INFORMATION
  Report Type: 
  Country: None (occurrence: None)
  Receive Date: 20080711
  Receipt Date: 20080702
  Transmission Date: 20090109
  Serious: Yes (Hospitalization)
  Sender: FDA-Public Use
  Company Number: JP-JNJFOC-20080700318

PATIENT
  Sex: Male

DRUGS (7)
  1. LEVOFLOXACIN [Suspect]
     Indication: LYMPHADENITIS BACTERIAL
     Route: 048
     Dates: start: 20080501, end: 20080507
  2. LOXONIN [Concomitant]
     Indication: LYMPHADENITIS BACTERIAL
     Route: 048
  3. DASEN [Concomitant]
     Indication: LYMPHADENITIS BACTERIAL
     Route: 048
  4. CABAGIN [Concomitant]
     Indication: LYMPHADENITIS BACTERIAL
     Route: 048
  5. SELBEX [Concomitant]
     Indication: LYMPHADENITIS BACTERIAL
     Route: 048
  6. MYSER [Concomitant]
     Indication: PUSTULAR PSORIASIS
     Route: 065
  7. PETROLATUM [Concomitant]
     Indication: PUSTULAR PSORIASIS
     Route: 065

REACTIONS (1)
  - ACQUIRED HAEMOPHILIA [None]
